FAERS Safety Report 9772357 (Version 1)
Quarter: 2013Q4

REPORT INFORMATION
  Report Type: Spontaneous
  Country: US (occurrence: None)
  Receive Date: 20131217
  Receipt Date: 20131217
  Transmission Date: 20140711
  Serious: Yes (Death)
  Sender: FDA-Public Use
  Company Number: 13-12-001

PATIENT
  Age: 62 None
  Sex: Female

DRUGS (1)
  1. METFORMIN HYDROCHLORIDE TABLETS [Suspect]

REACTIONS (1)
  - Toxicity to various agents [None]
